FAERS Safety Report 11320237 (Version 1)
Quarter: 2015Q3

REPORT INFORMATION
  Report Type: Spontaneous
  Country: IL (occurrence: IL)
  Receive Date: 20150729
  Receipt Date: 20150729
  Transmission Date: 20151125
  Serious: Yes (Other)
  Sender: FDA-Public Use
  Company Number: IL-PFIZER INC-2015203006

PATIENT
  Age: 43 Year
  Sex: Male

DRUGS (4)
  1. DIAMOX /00016901/ [Concomitant]
     Active Substance: ACETAZOLAMIDE
  2. PHOSPHOLINE IODIDE [Suspect]
     Active Substance: ECHOTHIOPHATE IODIDE
     Dosage: 0.125:100 EACH EYE, UNK
     Route: 047
  3. PHOSPHOLINE IODIDE [Suspect]
     Active Substance: ECHOTHIOPHATE IODIDE
     Dosage: 06:100 IN BOTH EYES, 2XDAY
     Route: 047
  4. EPINEPHRINE. [Suspect]
     Active Substance: EPINEPHRINE
     Indication: OPEN ANGLE GLAUCOMA
     Dosage: (1:100),3 XDAY
     Route: 047

REACTIONS (4)
  - Visual acuity reduced [Recovered/Resolved]
  - Intraocular pressure increased [Recovered/Resolved]
  - Pupillary block [Recovered/Resolved]
  - Angle closure glaucoma [Recovered/Resolved]
